FAERS Safety Report 24240419 (Version 2)
Quarter: 2024Q3

REPORT INFORMATION
  Report Type: Spontaneous
  Country: US (occurrence: US)
  Receive Date: 20240822
  Receipt Date: 20240909
  Transmission Date: 20241017
  Serious: Yes (Life-Threatening, Hospitalization)
  Sender: TEVA
  Company Number: US-TEVA-VS-3234654

PATIENT
  Age: 49 Year
  Sex: Female

DRUGS (4)
  1. HYDROCHLOROTHIAZIDE [Suspect]
     Active Substance: HYDROCHLOROTHIAZIDE
     Indication: Suicide attempt
     Dosage: RECEIVED 2 TABLETS
     Route: 065
  2. OXYCONTIN [Suspect]
     Active Substance: OXYCODONE HYDROCHLORIDE
     Indication: Suicide attempt
     Dosage: RECEIVED 20 TABLETS
     Route: 065
  3. ZOLPIDEM [Suspect]
     Active Substance: ZOLPIDEM TARTRATE
     Indication: Suicide attempt
     Dosage: RECEIVED 6 TABLETS
     Route: 065
  4. ACETAMINOPHEN\OXYCODONE HYDROCHLORIDE [Suspect]
     Active Substance: ACETAMINOPHEN\OXYCODONE HYDROCHLORIDE
     Indication: Suicide attempt
     Dosage: RECEIVED WHOLE BOTTLE
     Route: 048

REACTIONS (8)
  - Acute respiratory failure [Unknown]
  - Multiple organ dysfunction syndrome [Unknown]
  - Overdose [Unknown]
  - Choroidal infarction [Recovering/Resolving]
  - Septic shock [Unknown]
  - Pneumonia aspiration [Unknown]
  - Disseminated intravascular coagulation [Unknown]
  - Sepsis [Unknown]
